FAERS Safety Report 6493565-X (Version None)
Quarter: 2009Q4

REPORT INFORMATION
  Report Type: 
  Country: None (occurrence: None)
  Receive Date: 20091209
  Receipt Date: 20091123
  Transmission Date: 20100525
  Serious: Yes (Hospitalization)
  Sender: FDA-Public Use
  Company Number: 1000010368

PATIENT
  Age: 53 Year
  Sex: Female

DRUGS (4)
  1. DILTAZEM          (DILTAZEM HYDROCHLOROIDE) [Suspect]
     Dosage: 30 MG
  2. MEPHENOXALONE /  PARACETAMOL (ACETAMINOPHEN) [Suspect]
     Dosage: 200 MG/450 MG
  3. AMITRIPTYLINE HYDROCHLORIDE [Concomitant]
  4. DICLOFENAC POTASSIUM [Concomitant]

REACTIONS (2)
  - ACUTE GENERALISED EXANTHEMATOUS PUSTULOSIS [None]
  - APOPTOSIS [None]
